FAERS Safety Report 24951350 (Version 2)
Quarter: 2025Q4

REPORT INFORMATION
  Report Type: Spontaneous
  Country: CA (occurrence: CA)
  Receive Date: 20250210
  Receipt Date: 20251103
  Transmission Date: 20260117
  Serious: Yes (Life-Threatening, Hospitalization, Other)
  Sender: ALCON
  Company Number: CA-ALCON LABORATORIES-ALC2021CA002749

PATIENT
  Age: 32 Year
  Sex: Female

DRUGS (15)
  1. ATROPINE SULFATE [Suspect]
     Active Substance: ATROPINE SULFATE
     Indication: Product used for unknown indication
     Dosage: 0.6 MILLIGRAM
     Route: 065
  2. ATROPINE SULFATE [Suspect]
     Active Substance: ATROPINE SULFATE
     Indication: Bradycardia
  3. ATROPINE SULFATE [Suspect]
     Active Substance: ATROPINE SULFATE
     Indication: Hypotension
  4. ATROPINE [Suspect]
     Active Substance: ATROPINE
     Indication: Hypotension
     Dosage: 0.6 MILLIGRAM
     Route: 040
  5. ATROPINE [Suspect]
     Active Substance: ATROPINE
     Indication: Bradycardia
  6. ATROPINE [Suspect]
     Active Substance: ATROPINE
     Indication: Product used for unknown indication
  7. BUPIVACAINE [Suspect]
     Active Substance: BUPIVACAINE
     Indication: Spinal anaesthesia
     Dosage: 12.0 MILLIGRAM
     Route: 065
  8. EPHEDRINE [Suspect]
     Active Substance: EPHEDRINE
     Indication: Spinal anaesthesia
     Dosage: 10.0 MILLIGRAM
     Route: 040
  9. FENTANYL [Suspect]
     Active Substance: FENTANYL
     Indication: Spinal anaesthesia
     Dosage: 20.0 MILLIGRAM
     Route: 065
  10. MORPHINE [Suspect]
     Active Substance: MORPHINE
     Indication: Spinal anaesthesia
     Dosage: 150.0 MICROGRAM
     Route: 065
  11. PHENYLEPHRINE HYDROCHLORIDE [Suspect]
     Active Substance: PHENYLEPHRINE HYDROCHLORIDE
     Dosage: 25 UG
     Route: 042
  12. PHENYLEPHRINE HYDROCHLORIDE [Suspect]
     Active Substance: PHENYLEPHRINE HYDROCHLORIDE
     Indication: Caesarean section
     Dosage: 50 UG
     Route: 042
  13. PHENYLEPHRINE HYDROCHLORIDE [Suspect]
     Active Substance: PHENYLEPHRINE HYDROCHLORIDE
     Indication: Spinal anaesthesia
     Dosage: 50 UG 1 EVERY 1 MINUTE
     Route: 042
  14. PHENYLEPHRINE HYDROCHLORIDE [Suspect]
     Active Substance: PHENYLEPHRINE HYDROCHLORIDE
     Dosage: UNK
     Route: 042
  15. PHENYLEPHRINE HYDROCHLORIDE [Suspect]
     Active Substance: PHENYLEPHRINE HYDROCHLORIDE
     Indication: Product used for unknown indication
     Dosage: 50 UG 1 EVERY 1 MINUTES
     Route: 047

REACTIONS (9)
  - Anterior spinal artery syndrome [Not Recovered/Not Resolved]
  - Maternal exposure during pregnancy [Not Recovered/Not Resolved]
  - Neuralgia [Not Recovered/Not Resolved]
  - Paralysis [Not Recovered/Not Resolved]
  - Rhythm idioventricular [Not Recovered/Not Resolved]
  - Spinal cord injury [Not Recovered/Not Resolved]
  - Hypotension [Not Recovered/Not Resolved]
  - Urinary retention [Not Recovered/Not Resolved]
  - Bradycardia [Not Recovered/Not Resolved]
